FAERS Safety Report 6011876-9 (Version None)
Quarter: 2008Q4

REPORT INFORMATION
  Report Type: 
  Country: None (occurrence: None)
  Receive Date: 20081218
  Receipt Date: 20080925
  Transmission Date: 20090506
  Serious: No
  Sender: FDA-Public Use
  Company Number: US-ASTRAZENECA-2008UW20246

PATIENT
  Sex: Male

DRUGS (4)
  1. CRESTOR [Suspect]
     Dates: start: 20061101, end: 20080501
  2. CRESTOR [Suspect]
     Dates: start: 20080710
  3. FLOMAX [Concomitant]
  4. MIRAPEX [Concomitant]

REACTIONS (1)
  - DYSPHONIA [None]
